FAERS Safety Report 6354564-1 (Version None)
Quarter: 2009Q3

REPORT INFORMATION
  Report Type: 
  Country: None (occurrence: None)
  Receive Date: 20090909
  Receipt Date: 20090825
  Transmission Date: 20100115
  Serious: Yes (Other)
  Sender: FDA-Public Use
  Company Number: 000394

PATIENT
  Sex: Male
  Weight: 43 kg

DRUGS (3)
  1. VIMPAT [Suspect]
     Indication: EPILEPSY
     Dosage: 100 MG  BID), (250 MG, 100MG - 50MG - 100MG), (350 MG)
     Dates: start: 20090701
  2. VALPROATE SODIUM [Concomitant]
  3. NITRAZEPAM [Concomitant]

REACTIONS (6)
  - ANTICONVULSANT DRUG LEVEL DECREASED [None]
  - DRUG INTERACTION [None]
  - DRUG LEVEL DECREASED [None]
  - GRAND MAL CONVULSION [None]
  - RESTLESSNESS [None]
  - SCREAMING [None]
